FAERS Safety Report 15852590 (Version 1)
Quarter: 2019Q1

REPORT INFORMATION
  Report Type: Spontaneous
  Country: US (occurrence: US)
  Receive Date: 20190122
  Receipt Date: 20190122
  Transmission Date: 20190417
  Serious: No
  Sender: FDA-Public Use
  Company Number: US-ASTRAZENECA-2019SE06739

PATIENT
  Age: 70 Year
  Sex: Male
  Weight: 134.7 kg

DRUGS (2)
  1. FARXIGA [Suspect]
     Active Substance: DAPAGLIFLOZIN PROPANEDIOL
     Indication: TYPE 2 DIABETES MELLITUS
     Route: 048
     Dates: start: 2018
  2. SOLATOL [Concomitant]
     Active Substance: SOTALOL
     Indication: CARDIAC DISORDER
     Route: 048

REACTIONS (3)
  - Fungal infection [Not Recovered/Not Resolved]
  - Weight decreased [Not Recovered/Not Resolved]
  - Purpura [Not Recovered/Not Resolved]

NARRATIVE: CASE EVENT DATE: 2018
